FAERS Safety Report 6348255-0 (Version None)
Quarter: 2009Q3

REPORT INFORMATION
  Report Type: 
  Country: None (occurrence: None)
  Receive Date: 20090908
  Receipt Date: 20090824
  Transmission Date: 20100115
  Serious: Yes (Hospitalization)
  Sender: FDA-Public Use
  Company Number: 09-081

PATIENT
  Age: 12 Year
  Sex: Male
  Weight: 42.9103 kg

DRUGS (1)
  1. CEFTRIAXONE [Suspect]
     Indication: TONSILLITIS
     Dosage: 50 MG/KG PER DAY

REACTIONS (6)
  - BLOOD IMMUNOGLOBULIN E INCREASED [None]
  - EOSINOPHILIA [None]
  - HEPATITIS [None]
  - HEPATITIS B SURFACE ANTIGEN POSITIVE [None]
  - HYPERAEMIA [None]
  - PHARYNGEAL DISORDER [None]
